FAERS Safety Report 9551954 (Version 1)
Quarter: 2013Q2

REPORT INFORMATION
  Report Type: Spontaneous
  Country: US (occurrence: None)
  Receive Date: 20130627
  Receipt Date: 20130627
  Transmission Date: 20140414
  Serious: No
  Sender: FDA-Public Use
  Company Number: 1000045573

PATIENT
  Age: 64 Year
  Sex: Male

DRUGS (3)
  1. LINZESS (LINACLOTIDE) (145 MICROGRAM, CAPSULES) [Suspect]
     Indication: CONSTIPATION
     Dosage: 145 MCG, 1 IN 1 D
     Route: 048
     Dates: start: 20130529
  2. NEXIUM [Concomitant]
  3. AZOR [Concomitant]

REACTIONS (1)
  - Diarrhoea [None]
